FAERS Safety Report 21556074 (Version 1)
Quarter: 2022Q4

REPORT INFORMATION
  Report Type: Spontaneous
  Country: NO (occurrence: NO)
  Receive Date: 20221104
  Receipt Date: 20221104
  Transmission Date: 20230112
  Serious: Yes (Life-Threatening, Hospitalization)
  Sender: FDA-Public Use
  Company Number: None

PATIENT
  Age: 23 Year
  Sex: Male

DRUGS (3)
  1. CIBINQO [Suspect]
     Active Substance: ABROCITINIB
     Indication: Dermatitis atopic
     Dosage: 200 MG, 1X/DAY
     Route: 048
     Dates: start: 20220512, end: 20220802
  2. CIBINQO [Suspect]
     Active Substance: ABROCITINIB
     Dosage: 100 MG EVERY OTHER DAY AND 200 MG EVERY OTHER DAY
     Route: 048
     Dates: start: 20220803, end: 20220926
  3. XOLAIR [Concomitant]
     Active Substance: OMALIZUMAB
     Indication: Asthma
     Dosage: 1 DF EVERY 4 WEEKS

REACTIONS (3)
  - Sepsis [Recovering/Resolving]
  - Pneumonia haemophilus [Recovering/Resolving]
  - Dependence on respirator [Recovering/Resolving]

NARRATIVE: CASE EVENT DATE: 20220803
